FAERS Safety Report 7612750-4 (Version None)
Quarter: 2011Q2

REPORT INFORMATION
  Report Type: 
  Country: None (occurrence: None)
  Receive Date: 20110629
  Receipt Date: 20110621
  Transmission Date: 20111010
  Serious: Yes (Other)
  Sender: FDA-Public Use
  Company Number: CA-145188

PATIENT
  Sex: Female

DRUGS (11)
  1. WINRHO SDF [Suspect]
  2. WINRHO SDF [Suspect]
     Dosage: (300 UG), 120 UG TOTAL), (300 MG TOTAL), 300 UG TOTAL), (300 UG), (300 UG)
     Dates: start: 19960801, end: 19960801
  3. WINRHO SDF [Suspect]
     Dosage: (300 UG), 120 UG TOTAL), (300 MG TOTAL), 300 UG TOTAL), (300 UG), (300 UG)
     Dates: start: 19930402, end: 19930402
  4. WINRHO SDF [Suspect]
     Dosage: (300 UG), 120 UG TOTAL), (300 MG TOTAL), 300 UG TOTAL), (300 UG), (300 UG)
     Dates: start: 19930118, end: 19930118
  5. WINRHO SDF [Suspect]
     Dosage: (300 UG), 120 UG TOTAL), (300 MG TOTAL), 300 UG TOTAL), (300 UG), (300 UG)
     Dates: start: 19940610, end: 19940610
  6. WINRHO SDF [Suspect]
     Dosage: (300 UG), 120 UG TOTAL), (300 MG TOTAL), 300 UG TOTAL), (300 UG), (300 UG)
     Dates: start: 19960801, end: 19960801
  7. WINRHO SDF [Suspect]
     Dosage: (300 UG), 120 UG TOTAL), (300 MG TOTAL), 300 UG TOTAL), (300 UG), (300 UG)
     Dates: start: 19960429, end: 19960429
  8. WINRHO SDF [Suspect]
  9. WINRHO SDF [Suspect]
  10. WINRHO SDF [Suspect]
  11. WINRHO SDF [Suspect]

REACTIONS (1)
  - HEPATITIS C [None]
